FAERS Safety Report 6756769-4 (Version None)
Quarter: 2010Q2

REPORT INFORMATION
  Report Type: 
  Country: None (occurrence: None)
  Receive Date: 20100524
  Receipt Date: 20100210
  Transmission Date: 20101027
  Serious: No
  Sender: FDA-Public Use
  Company Number: 006774

PATIENT
  Sex: Female
  Weight: 81.6 kg

DRUGS (12)
  1. CIMZIA [Suspect]
     Indication: CROHN'S DISEASE
     Dosage: (400 MG SUBCUTANEOUS), (200 MG, EVERY 2 WEEKS SUBCUTANEOUS)
     Route: 058
     Dates: start: 20080101, end: 20090101
  2. CIMZIA [Suspect]
     Indication: CROHN'S DISEASE
     Dosage: (400 MG SUBCUTANEOUS), (200 MG, EVERY 2 WEEKS SUBCUTANEOUS)
     Route: 058
     Dates: start: 20090101
  3. NAPROXEN [Concomitant]
  4. BUSPIRONE HCL [Concomitant]
  5. CYCLOBENZAPRINE [Concomitant]
  6. XANAX [Concomitant]
  7. ALBUTEROL [Concomitant]
  8. NEXIUM [Concomitant]
  9. PROMETHAZINE [Concomitant]
  10. TRAMADOL HCL [Concomitant]
  11. AZATHIOPRINE [Concomitant]
  12. HYDROCODONE BITARTRATE [Concomitant]

REACTIONS (2)
  - INAPPROPRIATE SCHEDULE OF DRUG ADMINISTRATION [None]
  - PYREXIA [None]
